FAERS Safety Report 7320901-4 (Version None)
Quarter: 2011Q1

REPORT INFORMATION
  Report Type: 
  Country: None (occurrence: None)
  Receive Date: 20110223
  Receipt Date: 20110223
  Transmission Date: 20110831
  Serious: Yes (Other)
  Sender: FDA-Public Use
  Company Number: None

PATIENT
  Age: 59 Year
  Sex: Male
  Weight: 91.173 kg

DRUGS (1)
  1. PROMACTA [Suspect]
     Indication: THROMBOCYTOPENIA
     Dosage: 50 MG DAILY PO
     Route: 048
     Dates: start: 20101223, end: 20110210

REACTIONS (2)
  - RASH PRURITIC [None]
  - EYE SWELLING [None]
